FAERS Safety Report 16016724 (Version 1)
Quarter: 2019Q1

REPORT INFORMATION
  Report Type: Spontaneous
  Country: US (occurrence: US)
  Receive Date: 20190131
  Receipt Date: 20190131
  Transmission Date: 20190418
  Serious: Yes (Life-Threatening, Other)
  Sender: FDA-Public Use
  Company Number: None

PATIENT
  Age: 67 Year
  Sex: Male
  Weight: 47.63 kg

DRUGS (3)
  1. VITAMIN D3 [Concomitant]
     Active Substance: CHOLECALCIFEROL
  2. OXYCODONE/ACETAMINOPHEN 5-325MG TAB [Suspect]
     Active Substance: ACETAMINOPHEN\OXYCODONE HYDROCHLORIDE
     Indication: TOOTHACHE
     Dosage: ?          QUANTITY:325 MG MILLIGRAM(S);?
     Route: 048
     Dates: start: 20171122, end: 20171123
  3. VITAMIN A [Concomitant]
     Active Substance: VITAMIN A

REACTIONS (2)
  - Vomiting [None]
  - Gastrooesophageal reflux disease [None]

NARRATIVE: CASE EVENT DATE: 20171122
